FAERS Safety Report 5060065-3 (Version None)
Quarter: 2006Q3

REPORT INFORMATION
  Report Type: 
  Country: None (occurrence: None)
  Receive Date: 20060719
  Receipt Date: 20060712
  Transmission Date: 20061208
  Serious: Yes (Hospitalization)
  Sender: FDA-Public Use
  Company Number: 200610494BFR

PATIENT
  Age: 49 Year
  Sex: Male
  Weight: 55 kg

DRUGS (20)
  1. SORAFENIB [Suspect]
     Indication: RENAL CELL CARCINOMA STAGE UNSPECIFIED
     Dosage: 400 MG, BID, ORAL; SEE IMAGE
     Route: 048
     Dates: start: 20060526, end: 20060101
  2. SORAFENIB [Suspect]
     Indication: RENAL CELL CARCINOMA STAGE UNSPECIFIED
     Dosage: 400 MG, BID, ORAL; SEE IMAGE
     Route: 048
     Dates: start: 20060324, end: 20060421
  3. SORAFENIB [Suspect]
     Indication: RENAL CELL CARCINOMA STAGE UNSPECIFIED
     Dosage: 400 MG, BID, ORAL; SEE IMAGE
     Route: 048
     Dates: start: 20060421, end: 20060427
  4. SORAFENIB [Suspect]
     Indication: RENAL CELL CARCINOMA STAGE UNSPECIFIED
     Dosage: 400 MG, BID, ORAL; SEE IMAGE
     Route: 048
     Dates: start: 20060512, end: 20060526
  5. SORAFENIB [Suspect]
     Indication: RENAL CELL CARCINOMA STAGE UNSPECIFIED
     Dosage: 400 MG, BID, ORAL; SEE IMAGE
     Route: 048
     Dates: start: 20060101, end: 20060628
  6. MONO-TILDIEM [Concomitant]
  7. TRIATEC [Concomitant]
  8. FONZYLANE [Concomitant]
  9. ASPIRIN [Concomitant]
  10. INSULIN [Concomitant]
  11. CORDIPATCH [Concomitant]
  12. LEXOMIL [Concomitant]
  13. DOLIPRANE [Concomitant]
  14. LASILIX [Concomitant]
  15. ZOLOFT [Concomitant]
  16. URBANYL [Concomitant]
  17. AUGMENTIN '125' [Concomitant]
  18. NEXIUM [Concomitant]
  19. PRIMPERAN TAB [Concomitant]
  20. VOGALIB [Concomitant]

REACTIONS (3)
  - ANAEMIA [None]
  - FEBRILE NEUTROPENIA [None]
  - VOMITING [None]
